FAERS Safety Report 23825905 (Version 1)
Quarter: 2024Q2

REPORT INFORMATION
  Report Type: Spontaneous
  Country: US (occurrence: US)
  Receive Date: 20240507
  Receipt Date: 20240507
  Transmission Date: 20240716
  Serious: Yes (Other)
  Sender: FDA-Public Use
  Company Number: US-AMERICAN REGENT INC-2024001663

PATIENT
  Age: 42 Year
  Sex: Male

DRUGS (7)
  1. OXALIPLATIN [Suspect]
     Active Substance: OXALIPLATIN
     Indication: Colon cancer stage IV
     Dosage: UNK
     Route: 065
  2. FLUOROURACIL [Suspect]
     Active Substance: FLUOROURACIL
     Indication: Colon cancer stage IV
     Dosage: UNK
     Route: 065
  3. BEVACIZUMAB [Suspect]
     Active Substance: BEVACIZUMAB
     Indication: Colon cancer stage IV
     Dosage: UNK
     Route: 065
  4. IRINOTECAN [Suspect]
     Active Substance: IRINOTECAN
     Indication: Colon cancer stage IV
     Dosage: UNK
     Route: 065
  5. TIPIRACIL [Suspect]
     Active Substance: TIPIRACIL
     Indication: Colon cancer stage IV
     Dosage: UNK
     Route: 065
  6. TRIFLURIDINE [Suspect]
     Active Substance: TRIFLURIDINE
     Indication: Colon cancer stage IV
     Dosage: UNK
     Route: 065
  7. REGORAFENIB [Suspect]
     Active Substance: REGORAFENIB
     Indication: Colon cancer stage IV
     Dosage: UNK
     Route: 065

REACTIONS (3)
  - Drug ineffective [Recovered/Resolved]
  - Colon cancer stage IV [Recovered/Resolved]
  - Disease progression [Recovered/Resolved]
